FAERS Safety Report 12723634 (Version 1)
Quarter: 2016Q3

REPORT INFORMATION
  Report Type: Spontaneous
  Country: US (occurrence: US)
  Receive Date: 20160908
  Receipt Date: 20160908
  Transmission Date: 20161109
  Serious: No
  Sender: FDA-Public Use
  Company Number: US-009507513-1609USA003761

PATIENT
  Age: 26 Year
  Sex: Female
  Weight: 47.62 kg

DRUGS (1)
  1. NUVARING [Suspect]
     Active Substance: ETHINYL ESTRADIOL\ETONOGESTREL
     Dosage: 1 RING/ THREE WEEKS
     Route: 067

REACTIONS (3)
  - No adverse event [Unknown]
  - Device expulsion [Unknown]
  - Product quality issue [Unknown]

NARRATIVE: CASE EVENT DATE: 20160905
